FAERS Safety Report 11104305 (Version 1)
Quarter: 2015Q2

REPORT INFORMATION
  Report Type: Report from Study
  Country: US (occurrence: US)
  Receive Date: 20150511
  Receipt Date: 20150511
  Transmission Date: 20150821
  Serious: Yes (Death)
  Sender: FDA-Public Use
  Company Number: US-SA-2015SA061104

PATIENT
  Age: 74 Year
  Sex: Male

DRUGS (1)
  1. RENVELA [Suspect]
     Active Substance: SEVELAMER CARBONATE
     Route: 048
     Dates: end: 20150331

REACTIONS (4)
  - Renal disorder [Unknown]
  - Disease progression [Unknown]
  - Cardiac failure [Fatal]
  - Cardiac disorder [Unknown]
